FAERS Safety Report 24771403 (Version 1)
Quarter: 2024Q4

REPORT INFORMATION
  Report Type: Spontaneous
  Country: CA (occurrence: CA)
  Receive Date: 20241224
  Receipt Date: 20241224
  Transmission Date: 20250114
  Serious: Yes (Other)
  Sender: TEVA
  Company Number: CA-TEVA-VS-3276870

PATIENT
  Age: 74 Year
  Sex: Male

DRUGS (2)
  1. PREDNISONE [Suspect]
     Active Substance: PREDNISONE
     Indication: Hormone-dependent prostate cancer
     Dosage: DOSE FORM: NOT SPECIFIED
     Route: 065
  2. ABIRATERONE [Suspect]
     Active Substance: ABIRATERONE\ABIRATERONE ACETATE
     Indication: Hormone-dependent prostate cancer
     Route: 065

REACTIONS (1)
  - Glaucoma [Unknown]
